FAERS Safety Report 7051263-8 (Version None)
Quarter: 2010Q4

REPORT INFORMATION
  Report Type: 
  Country: None (occurrence: None)
  Receive Date: 20101019
  Receipt Date: 20101008
  Transmission Date: 20110411
  Serious: Yes (Life-Threatening, Hospitalization, Other)
  Sender: FDA-Public Use
  Company Number: CH-BRISTOL-MYERS SQUIBB COMPANY-15199102

PATIENT
  Age: 45 Year
  Sex: Female

DRUGS (1)
  1. ERBITUX [Suspect]
     Indication: TONGUE NEOPLASM MALIGNANT STAGE UNSPECIFIED
     Dosage: 35.7143MG/M2/DAY
     Route: 042
     Dates: start: 20100406, end: 20100511

REACTIONS (5)
  - GENERAL PHYSICAL HEALTH DETERIORATION [None]
  - MUCOSAL INFLAMMATION [None]
  - PNEUMATOSIS INTESTINALIS [None]
  - RASH [None]
  - SEPSIS [None]
